FAERS Safety Report 7788808-6 (Version None)
Quarter: 2011Q3

REPORT INFORMATION
  Report Type: 
  Country: None (occurrence: None)
  Receive Date: 20110928
  Receipt Date: 20110916
  Transmission Date: 20111222
  Serious: Yes (Death, Hospitalization)
  Sender: FDA-Public Use
  Company Number: 1046633

PATIENT
  Age: 79 Year
  Sex: Male

DRUGS (4)
  1. DRONEDARONE HCL [Suspect]
     Indication: ATRIAL FIBRILLATION
     Dosage: 400 MG TWICE PER DAY
  2. DOCETAXEL [Suspect]
     Indication: PROSTATE CANCER METASTATIC
     Dosage: 35 MG/M^2, INTRAVENOUS DRIP
     Route: 041
  3. PRAVASTATIN [Concomitant]
  4. FLUINDIONE [Concomitant]

REACTIONS (17)
  - DRUG INTERACTION [None]
  - DIARRHOEA [None]
  - OVERDOSE [None]
  - MUCOSAL INFLAMMATION [None]
  - STOMATITIS [None]
  - CONJUNCTIVITIS [None]
  - DISEASE COMPLICATION [None]
  - NEUTROPENIA [None]
  - SKIN LESION [None]
  - SEPSIS [None]
  - KERATITIS [None]
  - ATRIAL FIBRILLATION [None]
  - ERYTHEMA [None]
  - ACUTE RESPIRATORY FAILURE [None]
  - CIRCULATORY COLLAPSE [None]
  - SEPTIC SHOCK [None]
  - STREPTOCOCCUS TEST POSITIVE [None]
